FAERS Safety Report 17916075 (Version 1)
Quarter: 2020Q2

REPORT INFORMATION
  Report Type: Spontaneous
  Country: JP (occurrence: JP)
  Receive Date: 20200619
  Receipt Date: 20200619
  Transmission Date: 20200714
  Serious: Yes (Other)
  Sender: FDA-Public Use
  Company Number: JP-ELI_LILLY_AND_COMPANY-US202006004041

PATIENT
  Age: 68 Year
  Sex: Male

DRUGS (4)
  1. PORTRAZZA [Suspect]
     Active Substance: NECITUMUMAB
     Indication: NON-SMALL CELL LUNG CANCER RECURRENT
     Dosage: 800 MG, UNKNOWN
     Route: 042
     Dates: start: 20200521
  2. CISPLATIN. [Concomitant]
     Active Substance: CISPLATIN
     Indication: LUNG SQUAMOUS CELL CARCINOMA RECURRENT
     Dosage: UNK, UNKNOWN
     Dates: start: 20200521
  3. MAGNESIUM [Concomitant]
     Active Substance: MAGNESIUM
     Indication: PREMEDICATION
     Dosage: 8 MEQ, UNKNOWN
     Route: 065
  4. GEMCITABINE HYDROCHLORIDE. [Suspect]
     Active Substance: GEMCITABINE HYDROCHLORIDE
     Indication: LUNG SQUAMOUS CELL CARCINOMA RECURRENT
     Dosage: UNK, UNKNOWN
     Route: 065

REACTIONS (2)
  - Platelet count decreased [Recovered/Resolved]
  - Neutrophil count decreased [Not Recovered/Not Resolved]

NARRATIVE: CASE EVENT DATE: 20200605
